FAERS Safety Report 17750009 (Version 1)
Quarter: 2020Q2

REPORT INFORMATION
  Report Type: Spontaneous
  Country: TR (occurrence: TR)
  Receive Date: 20200506
  Receipt Date: 20200506
  Transmission Date: 20200714
  Serious: Yes (Other)
  Sender: FDA-Public Use
  Company Number: TR-CHEPLA-C20201424

PATIENT
  Age: 17 Year
  Sex: Male

DRUGS (5)
  1. GANCICLOVIR. [Suspect]
     Active Substance: GANCICLOVIR
     Indication: CYTOMEGALOVIRUS INFECTION REACTIVATION
     Dosage: 10 MG/KG/DAY
     Route: 065
  2. CYCLOSPORINE A [Suspect]
     Active Substance: CYCLOSPORINE
     Dosage: SWITCHED TO APPROXIMATELY 6 MG/KG PERORAL DAILY
     Route: 048
  3. CYCLOSPORINE A [Suspect]
     Active Substance: CYCLOSPORINE
     Dosage: TWO DOSES: 3 MG/KG DAILY FROM DAY -1 TO POST-TRANSPLANT DAYS +20 AND +30 INTRAVENOUSLY
     Route: 042
  4. FOSCARNET [Suspect]
     Active Substance: FOSCARNET
     Indication: CYTOMEGALOVIRUS INFECTION REACTIVATION
     Dosage: 180 MG/KG/DAY ON DAY +34
     Route: 065
  5. CIDOFOVIR. [Suspect]
     Active Substance: CIDOFOVIR
     Indication: BK VIRUS INFECTION
     Dosage: 5 MG/KG/WEEK ON DAYS +52, +67, +79

REACTIONS (4)
  - Drug resistance [Unknown]
  - Renal failure [Unknown]
  - BK virus infection [Unknown]
  - Respiratory distress [Unknown]
